FAERS Safety Report 5022518-3 (Version None)
Quarter: 2006Q2

REPORT INFORMATION
  Report Type: 
  Country: None (occurrence: None)
  Receive Date: 20060609
  Receipt Date: 20060529
  Transmission Date: 20061013
  Serious: Yes (Other)
  Sender: FDA-Public Use
  Company Number: JP-NOVOPROD-253785

PATIENT
  Age: 10 Year
  Sex: Male

DRUGS (1)
  1. NORDITROPIN [Suspect]
     Indication: BODY HEIGHT BELOW NORMAL
     Dosage: .175 MG/KG, WEEKLY
     Route: 058
     Dates: start: 19980101, end: 20000101

REACTIONS (4)
  - ACROMEGALY [None]
  - FACIAL DYSMORPHISM [None]
  - FIBROUS DYSPLASIA OF BONE [None]
  - SLEEP APNOEA SYNDROME [None]
